FAERS Safety Report 16334602 (Version 3)
Quarter: 2019Q4

REPORT INFORMATION
  Report Type: Report from Study
  Country: DE (occurrence: DE)
  Receive Date: 20190520
  Receipt Date: 20191206
  Transmission Date: 20200122
  Serious: Yes (Death, Life-Threatening)
  Sender: FDA-Public Use
  Company Number: PHHY2019DE115852

PATIENT
  Sex: Male

DRUGS (1)
  1. COSENTYX [Suspect]
     Active Substance: SECUKINUMAB
     Indication: PSORIASIS
     Dosage: 300 MG
     Route: 058
     Dates: start: 20180129, end: 20180212

REACTIONS (12)
  - Renal failure [Fatal]
  - Hepatic failure [Fatal]
  - Alcoholic liver disease [Fatal]
  - Retroperitoneal haematoma [Fatal]
  - Fournier^s gangrene [Fatal]
  - Myocardial infarction [Fatal]
  - Penile cancer [Fatal]
  - Electrolyte imbalance [Fatal]
  - Sopor [Fatal]
  - Retroperitoneal haemorrhage [Fatal]
  - Sepsis [Fatal]
  - Superinfection [Fatal]

NARRATIVE: CASE EVENT DATE: 201805
